FAERS Safety Report 17593259 (Version 1)
Quarter: 2020Q1

REPORT INFORMATION
  Report Type: Spontaneous
  Country: US (occurrence: US)
  Receive Date: 20200327
  Receipt Date: 20200327
  Transmission Date: 20200409
  Serious: No
  Sender: FDA-Public Use
  Company Number: US-CYCLE PHARMACEUTICALS LTD-2020-CYC-000004

PATIENT
  Sex: Male

DRUGS (1)
  1. NITYR [Suspect]
     Active Substance: NITISINONE
     Indication: AMINO ACID METABOLISM DISORDER
     Dosage: 2 MG, QD
     Route: 048
     Dates: start: 20200227

REACTIONS (1)
  - Hypersensitivity [Unknown]
